FAERS Safety Report 9153742 (Version 1)
Quarter: 2013Q1

REPORT INFORMATION
  Report Type: Spontaneous
  Country: US (occurrence: US)
  Receive Date: 20130311
  Receipt Date: 20130311
  Transmission Date: 20140127
  Serious: Yes (Other)
  Sender: FDA-Public Use
  Company Number: US-JNJFOC-20130215823

PATIENT
  Age: 64 Year
  Sex: Female
  Weight: 121.11 kg

DRUGS (9)
  1. XARELTO [Suspect]
     Indication: CEREBROVASCULAR ACCIDENT PROPHYLAXIS
     Route: 048
     Dates: start: 201302
  2. XARELTO [Suspect]
     Indication: ATRIAL FIBRILLATION
     Route: 048
     Dates: start: 201302
  3. SYNTHROID [Concomitant]
     Indication: THYROID DISORDER
     Route: 048
  4. CLONAZEPAM [Concomitant]
     Indication: ANXIETY
     Route: 048
     Dates: start: 2007
  5. METOPROLOL [Concomitant]
     Indication: HYPERTENSION
     Route: 048
  6. METOPROLOL [Concomitant]
     Indication: WEIGHT CONTROL
     Route: 048
  7. LEXAPRO [Concomitant]
     Indication: ANXIETY
     Route: 048
  8. VITAMIN B12 [Concomitant]
     Route: 065
     Dates: end: 201302
  9. VITAMIN D3 [Concomitant]
     Route: 065
     Dates: end: 201302

REACTIONS (2)
  - Haemorrhage [Not Recovered/Not Resolved]
  - Adverse event [Not Recovered/Not Resolved]
